FAERS Safety Report 6433086-3 (Version None)
Quarter: 2009Q4

REPORT INFORMATION
  Report Type: 
  Country: None (occurrence: None)
  Receive Date: 20091105
  Receipt Date: 20091020
  Transmission Date: 20100525
  Serious: Yes (Other)
  Sender: FDA-Public Use
  Company Number: AVE_01102_2009

PATIENT
  Sex: Female

DRUGS (1)
  1. NICOTINE [Suspect]
     Indication: SMOKING CESSATION THERAPY
     Dosage: (21 MG 1X/24 HOURS TRANSDERMAL)
     Route: 062
     Dates: start: 20091016

REACTIONS (8)
  - EYE SWELLING [None]
  - FEELING ABNORMAL [None]
  - HEARING IMPAIRED [None]
  - HYPOAESTHESIA ORAL [None]
  - INSOMNIA [None]
  - NAUSEA [None]
  - PARAESTHESIA ORAL [None]
  - VISION BLURRED [None]
